FAERS Safety Report 10441302 (Version 1)
Quarter: 2014Q3

REPORT INFORMATION
  Report Type: Spontaneous
  Country: CA (occurrence: None)
  Receive Date: 20140908
  Receipt Date: 20140908
  Transmission Date: 20150326
  Serious: Yes (Hospitalization)
  Sender: FDA-Public Use
  Company Number: None

PATIENT
  Age: 3 Year
  Sex: Male
  Weight: 15.7 kg

DRUGS (3)
  1. MERCAPTOPURINE. [Suspect]
     Active Substance: MERCAPTOPURINE
  2. METHOTREXATE [Suspect]
     Active Substance: METHOTREXATE
  3. VINCRISTINE SULFATE. [Suspect]
     Active Substance: VINCRISTINE SULFATE

REACTIONS (7)
  - Blister [None]
  - Pyrexia [None]
  - Toxicity to various agents [None]
  - Swelling face [None]
  - Hand-foot-and-mouth disease [None]
  - Epstein-Barr virus infection [None]
  - Lymphadenitis [None]

NARRATIVE: CASE EVENT DATE: 20140827
